FAERS Safety Report 9630761 (Version 1)
Quarter: 2013Q4

REPORT INFORMATION
  Report Type: Spontaneous
  Country: CO (occurrence: CO)
  Receive Date: 20131018
  Receipt Date: 20131018
  Transmission Date: 20140711
  Serious: Yes (Death)
  Sender: FDA-Public Use
  Company Number: PHHY2013CO117124

PATIENT
  Age: 57 Year
  Sex: Female

DRUGS (1)
  1. AFINITOR [Suspect]
     Indication: BREAST CANCER
     Dosage: 10 MG, QD
     Route: 048

REACTIONS (1)
  - Death [Fatal]
